FAERS Safety Report 23092633 (Version 1)
Quarter: 2023Q4

REPORT INFORMATION
  Report Type: Spontaneous
  Country: LT (occurrence: LT)
  Receive Date: 20231021
  Receipt Date: 20231021
  Transmission Date: 20240110
  Serious: Yes (Other)
  Sender: FDA-Public Use
  Company Number: None

PATIENT
  Age: 74 Year
  Sex: Male

DRUGS (30)
  1. CARBOPLATIN [Suspect]
     Active Substance: CARBOPLATIN
     Indication: Product used for unknown indication
     Dosage: UNK (10 COURSE)
     Dates: start: 20210929
  2. PEMETREXED [Suspect]
     Active Substance: PEMETREXED
     Indication: Product used for unknown indication
     Dosage: UNK (9 COURSE)
     Dates: start: 2021
  3. PEMBROLIZUMAB [Suspect]
     Active Substance: PEMBROLIZUMAB
     Indication: Product used for unknown indication
     Dosage: UNK (7 COURSE)
     Dates: start: 2021
  4. PEMBROLIZUMAB [Suspect]
     Active Substance: PEMBROLIZUMAB
     Indication: Product used for unknown indication
     Dosage: UNK (8 COURSE)
     Dates: start: 2021
  5. PEMBROLIZUMAB [Suspect]
     Active Substance: PEMBROLIZUMAB
     Indication: Product used for unknown indication
     Dosage: UNK (3 COURSE)
     Dates: start: 2021
  6. PEMBROLIZUMAB [Suspect]
     Active Substance: PEMBROLIZUMAB
     Indication: Product used for unknown indication
     Dosage: UNK (6 COURSE)
     Dates: start: 2021
  7. PEMBROLIZUMAB [Suspect]
     Active Substance: PEMBROLIZUMAB
     Indication: Product used for unknown indication
     Dosage: UNK (10 COURSE)
     Dates: start: 20210929
  8. PEMBROLIZUMAB [Suspect]
     Active Substance: PEMBROLIZUMAB
     Indication: Product used for unknown indication
     Dosage: UNK (1 COURSE)
     Dates: start: 202101
  9. PEMBROLIZUMAB [Suspect]
     Active Substance: PEMBROLIZUMAB
     Indication: Product used for unknown indication
     Dosage: UNK (4 COURSE)
     Dates: start: 2021
  10. PEMBROLIZUMAB [Suspect]
     Active Substance: PEMBROLIZUMAB
     Indication: Product used for unknown indication
     Dosage: UNK (9 COURSE)
     Dates: start: 2021
  11. CARBOPLATIN [Suspect]
     Active Substance: CARBOPLATIN
     Indication: Product used for unknown indication
     Dosage: UNK (3 COURSE)
     Dates: start: 2021
  12. CARBOPLATIN [Suspect]
     Active Substance: CARBOPLATIN
     Indication: Product used for unknown indication
     Dosage: UNK (2 COURSE)
     Dates: start: 2021
  13. CARBOPLATIN [Suspect]
     Active Substance: CARBOPLATIN
     Indication: Product used for unknown indication
     Dosage: UNK (7 COURSE)
     Dates: start: 2021
  14. CARBOPLATIN [Suspect]
     Active Substance: CARBOPLATIN
     Indication: Product used for unknown indication
     Dosage: UNK (1 COURSE)
     Dates: start: 202101
  15. CARBOPLATIN [Suspect]
     Active Substance: CARBOPLATIN
     Indication: Product used for unknown indication
     Dosage: UNK (9 COURSE)
     Dates: start: 2021
  16. CARBOPLATIN [Suspect]
     Active Substance: CARBOPLATIN
     Indication: Product used for unknown indication
     Dosage: UNK (4 COURSE)
     Dates: start: 2021
  17. CARBOPLATIN [Suspect]
     Active Substance: CARBOPLATIN
     Indication: Product used for unknown indication
     Dosage: UNK (8 COURSE)
     Dates: start: 2021
  18. CARBOPLATIN [Suspect]
     Active Substance: CARBOPLATIN
     Indication: Product used for unknown indication
     Dosage: UNK (6 COURSE)
     Dates: start: 2021
  19. CARBOPLATIN [Suspect]
     Active Substance: CARBOPLATIN
     Indication: Product used for unknown indication
     Dosage: UNK (5 COURSE)
     Dates: start: 2021
  20. PEMETREXED [Suspect]
     Active Substance: PEMETREXED
     Indication: Product used for unknown indication
     Dosage: UNK (7 COURSE)
     Dates: start: 2021
  21. PEMETREXED [Suspect]
     Active Substance: PEMETREXED
     Indication: Product used for unknown indication
     Dosage: UNK (6 COURSE)
     Dates: start: 2021
  22. PEMETREXED [Suspect]
     Active Substance: PEMETREXED
     Indication: Product used for unknown indication
     Dosage: UNK (8 COURSE)
     Dates: start: 2021
  23. PEMETREXED [Suspect]
     Active Substance: PEMETREXED
     Indication: Product used for unknown indication
     Dosage: UNK (1 COURSE)
     Dates: start: 202101
  24. PEMETREXED [Suspect]
     Active Substance: PEMETREXED
     Indication: Product used for unknown indication
     Dosage: UNK (2 COURSE)
     Dates: start: 2021
  25. PEMETREXED [Suspect]
     Active Substance: PEMETREXED
     Indication: Product used for unknown indication
     Dosage: UNK (10 COURSE)
     Dates: start: 20210929
  26. PEMETREXED [Suspect]
     Active Substance: PEMETREXED
     Indication: Product used for unknown indication
     Dosage: UNK (3  COURSE)
     Dates: start: 2021
  27. PEMETREXED [Suspect]
     Active Substance: PEMETREXED
     Indication: Product used for unknown indication
     Dosage: UNK (4 COURSE)
     Dates: start: 2021
  28. PEMETREXED [Suspect]
     Active Substance: PEMETREXED
     Indication: Product used for unknown indication
     Dosage: UNK (5 COURSE)
     Dates: start: 2021
  29. PEMBROLIZUMAB [Suspect]
     Active Substance: PEMBROLIZUMAB
     Indication: Product used for unknown indication
     Dosage: UNK (5 COURSE)
     Dates: start: 2021
  30. PEMBROLIZUMAB [Suspect]
     Active Substance: PEMBROLIZUMAB
     Indication: Product used for unknown indication
     Dosage: UNK (2 COURSE)
     Dates: start: 2021

REACTIONS (17)
  - Neutropenia [Unknown]
  - Rash erythematous [Recovered/Resolved]
  - Peripheral swelling [Recovering/Resolving]
  - Oedema [Unknown]
  - C-reactive protein abnormal [Unknown]
  - Constipation [Unknown]
  - Pain in extremity [Recovering/Resolving]
  - Nausea [Unknown]
  - Pyrexia [Unknown]
  - Dyspnoea [Unknown]
  - Decreased appetite [Unknown]
  - Platelet count abnormal [Unknown]
  - Anaemia [Unknown]
  - Asthenia [Unknown]
  - Back pain [Unknown]
  - Toxicity to various agents [Unknown]
  - Fatigue [Unknown]

NARRATIVE: CASE EVENT DATE: 20210101
